FAERS Safety Report 6642318-8 (Version None)
Quarter: 2010Q1

REPORT INFORMATION
  Report Type: 
  Country: None (occurrence: None)
  Receive Date: 20100319
  Receipt Date: 20100315
  Transmission Date: 20100710
  Serious: Yes (Death, Other)
  Sender: FDA-Public Use
  Company Number: US-SANOFI-AVENTIS-2010SA014588

PATIENT
  Sex: Female

DRUGS (12)
  1. MULTAQ [Suspect]
     Route: 048
     Dates: start: 20100101
  2. PRILOSEC [Concomitant]
  3. COLACE [Concomitant]
  4. ASPIRIN [Concomitant]
  5. ARIMIDEX [Concomitant]
  6. ACTOS [Concomitant]
  7. ZOCOR [Concomitant]
  8. PAROXETINE HCL [Concomitant]
  9. TYLENOL-500 [Concomitant]
  10. COUMADIN [Concomitant]
  11. POTASSIUM [Concomitant]
  12. CARDIZEM [Concomitant]

REACTIONS (12)
  - BLOOD CREATININE INCREASED [None]
  - BLOOD POTASSIUM INCREASED [None]
  - BRADYCARDIA [None]
  - CARDIAC FAILURE CONGESTIVE [None]
  - ELECTROCARDIOGRAM QT PROLONGED [None]
  - HYPOKALAEMIA [None]
  - HYPOTENSION [None]
  - PNEUMONIA [None]
  - RENAL FAILURE ACUTE [None]
  - RESPIRATORY FAILURE [None]
  - SEPSIS [None]
  - TORSADE DE POINTES [None]
